FAERS Safety Report 4824982-9 (Version None)
Quarter: 2005Q4

REPORT INFORMATION
  Report Type: 
  Country: None (occurrence: None)
  Receive Date: 20051109
  Receipt Date: 20051109
  Transmission Date: 20060501
  Serious: Yes (Disabling)
  Sender: FDA-Public Use
  Company Number: None

PATIENT
  Age: 33 Year
  Sex: Female
  Weight: 56.6996 kg

DRUGS (1)
  1. MINOCYCLINE [Suspect]
     Indication: ACNE
     Dosage: 2 CAPSULES   ONCE A DAY
     Dates: start: 20050701, end: 20051109

REACTIONS (4)
  - HEADACHE [None]
  - IMPAIRED WORK ABILITY [None]
  - NAUSEA [None]
  - VISION BLURRED [None]
